FAERS Safety Report 10186377 (Version 1)
Quarter: 2014Q2

REPORT INFORMATION
  Report Type: Spontaneous
  Country: US (occurrence: US)
  Receive Date: 20140521
  Receipt Date: 20140521
  Transmission Date: 20141212
  Serious: No
  Sender: FDA-Public Use
  Company Number: US-ASTRAZENECA-2013SE76851

PATIENT
  Age: 83 Year
  Sex: Male
  Weight: 74.8 kg

DRUGS (2)
  1. PULMICORT FLEXHALER [Suspect]
     Indication: ASTHMA
     Dosage: 180MCG 1 PUFF ONCE IN THE MORNING AND ONCE IN THE EVENING
     Route: 055
     Dates: start: 201310
  2. UNSPECIFIED MEDICATION FOR DIABETES [Concomitant]
     Indication: DIABETES MELLITUS

REACTIONS (2)
  - Hypoacusis [Unknown]
  - Cough [Unknown]
